FAERS Safety Report 4669356-9 (Version None)
Quarter: 2005Q2

REPORT INFORMATION
  Report Type: 
  Country: None (occurrence: None)
  Receive Date: 20050523
  Receipt Date: 20050413
  Transmission Date: 20051028
  Serious: Yes (Life-Threatening, Hospitalization, Disabling, Other)
  Sender: FDA-Public Use
  Company Number: ES-NOVOPROD-243517

PATIENT
  Age: 30 Year
  Sex: Male
  Weight: 85 kg

DRUGS (13)
  1. NOVOSEVEN [Suspect]
     Indication: BRAIN CONTUSION
     Dosage: 40 UG/KG, QD
     Route: 042
     Dates: start: 20050410, end: 20050410
  2. NORADRENALINE [Concomitant]
     Indication: CEREBRAL PERFUSION PRESSURE DECREASED
     Dosage: 29.24 MG, QD
     Route: 042
     Dates: start: 20050410
  3. NIMBEX [Concomitant]
     Indication: PARALYSIS
     Dosage: 90 MG, QD
     Route: 042
     Dates: start: 20050410
  4. FUROSEMIDE [Concomitant]
     Indication: POLYURIA
     Dosage: 10 MG, QD
     Route: 042
     Dates: start: 20050411, end: 20050411
  5. FUROSEMIDE [Concomitant]
     Dosage: 10 MG, QD
     Route: 042
     Dates: start: 20050415
  6. SALINE MIXTURE [Concomitant]
     Dosage: 1100 ML, QD
     Route: 042
     Dates: start: 20050411, end: 20050411
  7. OMEPRAZOLE [Concomitant]
     Dosage: 40 MG, QD
     Route: 042
     Dates: start: 20050411
  8. METOCLOPRAMIDE [Concomitant]
     Indication: VOMITING
     Dosage: 40 MG, QD
     Route: 042
     Dates: start: 20050410
  9. MORPHINE [Concomitant]
     Indication: ANALGESIC EFFECT
     Dosage: 72 MG, QD
     Route: 042
     Dates: start: 20050410
  10. MORPHINE [Concomitant]
     Dosage: 42 MG, QD
     Route: 042
     Dates: start: 20050410
  11. MIDAZOLAM [Concomitant]
     Indication: SEDATION
     Dosage: 380 MG, QD
     Route: 042
     Dates: start: 20050411, end: 20050416
  12. MIDAZOLAM [Concomitant]
     Dosage: 675 MG, QD
     Route: 042
     Dates: start: 20050417
  13. AK [Concomitant]
     Indication: BLOOD POTASSIUM DECREASED
     Dosage: .76 G, QD
     Route: 042
     Dates: start: 20050411

REACTIONS (2)
  - BRAIN CONTUSION [None]
  - MYOCARDIAL ISCHAEMIA [None]
